FAERS Safety Report 10584335 (Version 1)
Quarter: 2014Q4

REPORT INFORMATION
  Report Type: Spontaneous
  Country: US (occurrence: None)
  Receive Date: 20141113
  Receipt Date: 20141113
  Transmission Date: 20150529
  Serious: Yes (Life-Threatening, Disabling, Other)
  Sender: FDA-Public Use
  Company Number: None

PATIENT
  Age: 42 Year
  Sex: Male
  Weight: 131.09 kg

DRUGS (1)
  1. INTERFERON ALFA-2B [Suspect]
     Active Substance: INTERFERON ALFA-2B
     Indication: MALIGNANT MELANOMA
     Dosage: 250 MG PER 500 ML OR 1 G) DELIVERED AS CHEMO INTO A PORT ON CHEST 30 DAYS IN A ROW THEN EVERY OTHER DAY BY INJECTION PEN FOR
     Dates: start: 20071105, end: 20080830

REACTIONS (4)
  - Anxiety [None]
  - General physical health deterioration [None]
  - Nervous system disorder [None]
  - Muscle spasms [None]

NARRATIVE: CASE EVENT DATE: 20071105
